FAERS Safety Report 10932837 (Version 1)
Quarter: 2015Q1

REPORT INFORMATION
  Report Type: Spontaneous
  Country: US (occurrence: None)
  Receive Date: 20150319
  Receipt Date: 20150319
  Transmission Date: 20150721
  Serious: No
  Sender: FDA-Public Use
  Company Number: None

PATIENT
  Age: 51 Year
  Sex: Female

DRUGS (5)
  1. CLONOZEPAM (GENERIC FOR KLONOPIN) [Suspect]
     Active Substance: CLONAZEPAM
     Indication: SLEEP DISORDER THERAPY
     Dosage: 2 PILLS AT BEDTIME
     Route: 048
  2. CLONAZAPAM [Concomitant]
  3. RISPERDAL SHOT [Concomitant]
  4. CLONOZEPAM (GENERIC FOR KLONOPIN) [Suspect]
     Active Substance: CLONAZEPAM
     Indication: DYSPNOEA
     Dosage: 2 PILLS AT BEDTIME
     Route: 048
  5. LITHIUM [Concomitant]
     Active Substance: LITHIUM CARBONATE

REACTIONS (1)
  - Therapeutic response unexpected [None]
